FAERS Safety Report 5527161-5 (Version None)
Quarter: 2007Q4

REPORT INFORMATION
  Report Type: 
  Country: None (occurrence: None)
  Receive Date: 20071121
  Receipt Date: 20071107
  Transmission Date: 20080405
  Serious: Yes (Hospitalization)
  Sender: FDA-Public Use
  Company Number: 440001J07USA

PATIENT
  Age: 49 Year
  Sex: Male

DRUGS (2)
  1. SEROSTIM [Suspect]
     Indication: CACHEXIA
  2. XANAX [Concomitant]

REACTIONS (2)
  - INCORRECT DOSE ADMINISTERED [None]
  - SUICIDE ATTEMPT [None]
